FAERS Safety Report 10936521 (Version 1)
Quarter: 2015Q1

REPORT INFORMATION
  Report Type: Spontaneous
  Country: None (occurrence: None)
  Receive Date: 20150320
  Receipt Date: 20150320
  Transmission Date: 20150721
  Serious: Yes (Other)
  Sender: FDA-Public Use
  Company Number: None

PATIENT
  Age: 36 Year
  Sex: Female
  Weight: 59.42 kg

DRUGS (6)
  1. OTC PRENATAL GUMMY VITAMINS [Concomitant]
  2. PERCOCET [Concomitant]
     Active Substance: ACETAMINOPHEN\OXYCODONE HYDROCHLORIDE
  3. BILTRICIDE [Suspect]
     Active Substance: PRAZIQUANTEL
     Indication: SCHISTOSOMIASIS
     Route: 048
     Dates: start: 20150307, end: 20150307
  4. PYRIDOXINE [Concomitant]
     Active Substance: PYRIDOXINE
  5. MAGNESIUM HYDROXIDE. [Concomitant]
     Active Substance: MAGNESIUM HYDROXIDE
  6. DOXYLAMINE [Concomitant]
     Active Substance: DOXYLAMINE

REACTIONS (5)
  - Headache [None]
  - Foetal death [None]
  - Dizziness [None]
  - Abdominal discomfort [None]
  - Exposure during pregnancy [None]

NARRATIVE: CASE EVENT DATE: 20150317
